FAERS Safety Report 18088701 (Version 1)
Quarter: 2020Q3

REPORT INFORMATION
  Report Type: Spontaneous
  Country: FR (occurrence: FR)
  Receive Date: 20200729
  Receipt Date: 20200729
  Transmission Date: 20201103
  Serious: Yes (Hospitalization)
  Sender: FDA-Public Use
  Company Number: NVSC2020FR209373

PATIENT
  Sex: Female

DRUGS (3)
  1. ASPEGIC [Concomitant]
     Indication: SENSATION OF BLOOD FLOW
     Dosage: 100 MG
     Route: 065
  2. TAREG [Suspect]
     Active Substance: VALSARTAN
     Indication: HYPERTENSION
     Dosage: 160 MG, QD (DAILY IN THE MORNING)
     Route: 065
     Dates: start: 20180724
  3. LOXEN [Concomitant]
     Indication: PRODUCT USED FOR UNKNOWN INDICATION
     Dosage: 50 MG, BID
     Route: 065
     Dates: start: 20180724

REACTIONS (6)
  - Chalazion [Unknown]
  - Fall [Unknown]
  - Joint injury [Unknown]
  - Tendon injury [Unknown]
  - Vertigo positional [Unknown]
  - Dizziness [Unknown]

NARRATIVE: CASE EVENT DATE: 20200703
